FAERS Safety Report 11039561 (Version 1)
Quarter: 2015Q2

REPORT INFORMATION
  Report Type: Spontaneous
  Country: US (occurrence: US)
  Receive Date: 20150416
  Receipt Date: 20150416
  Transmission Date: 20150821
  Serious: No
  Sender: FDA-Public Use
  Company Number: US-GLAXOSMITHKLINE-US2015GSK046118

PATIENT
  Sex: Female
  Weight: 57.6 kg

DRUGS (2)
  1. HYCAMTIN [Suspect]
     Active Substance: TOPOTECAN HYDROCHLORIDE
     Indication: BRONCHIAL NEOPLASM
     Dosage: 3.75 MG, QD
     Route: 048
     Dates: start: 20150218
  2. HYCAMTIN [Suspect]
     Active Substance: TOPOTECAN HYDROCHLORIDE
     Indication: LUNG NEOPLASM MALIGNANT
     Dosage: 3.75 MG, QD
     Route: 048
     Dates: start: 20150218

REACTIONS (1)
  - Drug hypersensitivity [Unknown]
